FAERS Safety Report 8168612-X (Version None)
Quarter: 2012Q1

REPORT INFORMATION
  Report Type: 
  Country: None (occurrence: None)
  Receive Date: 20120222
  Receipt Date: 20120210
  Transmission Date: 20120608
  Serious: Yes (Other)
  Sender: FDA-Public Use
  Company Number: AUR-APL-2012-00899

PATIENT
  Age: 78 Year
  Sex: Female

DRUGS (6)
  1. SIMVASTATIN [Concomitant]
  2. SERTRALINE HYDROCHLORIDE [Suspect]
     Indication: DEPRESSION
     Dosage: (50 MG), ORAL
     Route: 048
     Dates: start: 20111230, end: 20120113
  3. LOPERAMIDE [Concomitant]
  4. ZOPICLONE (ZOPICLONE) [Concomitant]
  5. PREGABALIN [Concomitant]
  6. COLECALCIFEROL (COLECALCIFEROL) [Concomitant]

REACTIONS (1)
  - ERYTHEMA MULTIFORME [None]
